FAERS Safety Report 6240556-X (Version None)
Quarter: 2009Q2

REPORT INFORMATION
  Report Type: 
  Country: None (occurrence: None)
  Receive Date: 20090623
  Receipt Date: 20080922
  Transmission Date: 20091009
  Serious: No
  Sender: FDA-Public Use
  Company Number: US-ASTRAZENECA-2008UW19770

PATIENT
  Age: 68 Year
  Sex: Male

DRUGS (9)
  1. PULMICORT RESPULES [Suspect]
     Indication: CHRONIC OBSTRUCTIVE PULMONARY DISEASE
     Dosage: .05 MG/2ML TWICE A DAY
     Route: 055
     Dates: start: 20080601
  2. IPRATROPIUM BROMIDE [Concomitant]
  3. ALBUTEROL [Concomitant]
  4. SPIRIVA [Concomitant]
  5. PEPCID [Concomitant]
  6. KLONOPIN [Concomitant]
  7. THEO-24 [Concomitant]
  8. PROTONIX [Concomitant]
  9. TYLENOL IV CODEINE [Concomitant]

REACTIONS (2)
  - ABDOMINAL PAIN UPPER [None]
  - CONSTIPATION [None]
